FAERS Safety Report 12927859 (Version 26)
Quarter: 2018Q2

REPORT INFORMATION
  Report Type: Report from Study
  Country: BE (occurrence: BE)
  Receive Date: 20161110
  Receipt Date: 20180629
  Transmission Date: 20180711
  Serious: Yes (Death, Hospitalization, Disabling)
  Sender: FDA-Public Use
  Company Number: BE-ROCHE-1847384

PATIENT
  Age: 65 Year
  Sex: Male
  Weight: 108.9 kg

DRUGS (63)
  1. AMLOR [Concomitant]
     Active Substance: AMLODIPINE BESYLATE
     Indication: HYPERTENSION
     Route: 065
     Dates: start: 2010
  2. D-CURE [Concomitant]
     Active Substance: CHOLECALCIFEROL
     Route: 065
     Dates: start: 20160922, end: 20160928
  3. BURINEX [Concomitant]
     Active Substance: BUMETANIDE
     Indication: DIURETIC THERAPY
     Route: 065
     Dates: start: 2012
  4. METFORMAX [Concomitant]
     Active Substance: METFORMIN HYDROCHLORIDE
     Indication: HYPERGLYCAEMIA
     Route: 065
     Dates: start: 2008
  5. EMEND [Concomitant]
     Active Substance: APREPITANT
     Route: 065
     Dates: start: 20161109, end: 20161110
  6. LITICAN [Concomitant]
     Active Substance: ALIZAPRIDE HYDROCHLORIDE
     Route: 065
     Dates: start: 20161206, end: 20161210
  7. ONDANSETRON [Concomitant]
     Active Substance: ONDANSETRON
     Route: 065
     Dates: start: 20161108, end: 20161108
  8. EMEND [Concomitant]
     Active Substance: APREPITANT
     Route: 065
     Dates: start: 20170102, end: 20170102
  9. LITICAN [Concomitant]
     Active Substance: ALIZAPRIDE HYDROCHLORIDE
     Route: 065
     Dates: start: 20170103
  10. ITRACONAZOLE. [Concomitant]
     Active Substance: ITRACONAZOLE
     Indication: LEUKOPENIA
     Route: 065
     Dates: start: 20161114, end: 20161121
  11. ITRACONAZOLE. [Concomitant]
     Active Substance: ITRACONAZOLE
     Indication: NEUTROPENIA
     Route: 065
     Dates: start: 20161219, end: 20161226
  12. COMBIVENT [Concomitant]
     Active Substance: ALBUTEROL SULFATE\IPRATROPIUM BROMIDE
     Route: 065
     Dates: start: 20170124
  13. ATARAX [Concomitant]
     Active Substance: HYDROXYZINE HYDROCHLORIDE
     Indication: INSOMNIA
     Route: 065
     Dates: start: 20170208
  14. MONURIL [Concomitant]
     Active Substance: FOSFOMYCIN SODIUM
     Dosage: REPORTED AS : MONURIL 3G (1X)
     Route: 065
     Dates: start: 20170217, end: 20170217
  15. TRAZODONE [Concomitant]
     Active Substance: TRAZODONE HYDROCHLORIDE
     Indication: INSOMNIA
     Route: 065
     Dates: start: 20170218, end: 20170220
  16. METFORMIN [Concomitant]
     Active Substance: METFORMIN HYDROCHLORIDE
     Route: 065
  17. CLEXANE [Concomitant]
     Active Substance: ENOXAPARIN SODIUM
     Indication: THROMBOSIS PROPHYLAXIS
     Route: 065
     Dates: start: 20160922, end: 20161129
  18. EMEND [Concomitant]
     Active Substance: APREPITANT
     Route: 065
     Dates: start: 20161108, end: 20161108
  19. LITICAN [Concomitant]
     Active Substance: ALIZAPRIDE HYDROCHLORIDE
     Route: 065
     Dates: start: 20161109, end: 20161113
  20. OFLOXACINE [Concomitant]
     Active Substance: OFLOXACIN
     Indication: NEUTROPENIA
     Route: 065
     Dates: start: 20161219
  21. MAGNESIUM SULFATE. [Concomitant]
     Active Substance: MAGNESIUM SULFATE
     Indication: HYPOMAGNESAEMIA
     Route: 065
     Dates: start: 20170115, end: 20170117
  22. DEXDOR [Concomitant]
     Active Substance: DEXMEDETOMIDINE HYDROCHLORIDE
     Route: 065
     Dates: start: 20170125, end: 20170201
  23. DOMINAL (BELGIUM) [Concomitant]
     Route: 065
     Dates: start: 20170218
  24. ALDACTONE (BELGIUM) [Concomitant]
     Indication: HYPERTENSION
     Route: 065
     Dates: start: 2010
  25. ZOLEDRONIC ACID [Concomitant]
     Active Substance: ZOLEDRONIC ACID
     Indication: METASTASES TO BONE
     Route: 065
     Dates: start: 20161006, end: 20170102
  26. EMEND [Concomitant]
     Active Substance: APREPITANT
     Route: 065
     Dates: start: 20161206, end: 20161207
  27. ITRACONAZOLE. [Concomitant]
     Active Substance: ITRACONAZOLE
     Indication: PANCYTOPENIA
     Route: 065
     Dates: start: 20170118, end: 20170120
  28. DAKTARIN [Concomitant]
     Active Substance: MICONAZOLE NITRATE
     Indication: ORAL FUNGAL INFECTION
     Dosage: 40G (20 MG/1G)
     Route: 048
     Dates: start: 20161205
  29. INNOHEP [Concomitant]
     Active Substance: TINZAPARIN SODIUM
     Indication: THROMBOSIS PROPHYLAXIS
     Route: 065
     Dates: start: 20170102
  30. ATEZOLIZUMAB. [Suspect]
     Active Substance: ATEZOLIZUMAB
     Indication: NON-SMALL CELL LUNG CANCER STAGE IV
     Dosage: THE DATE OF THE MOST RECENT DOSE OF ATEZOLIZUMAB 1200 MG PRIOR TO SAE ONSET WAS ADMINISTERED ON 17/O
     Route: 042
     Dates: start: 20161017
  31. PEMETREXED. [Suspect]
     Active Substance: PEMETREXED
     Indication: NON-SMALL CELL LUNG CANCER STAGE IV
     Dosage: THE DATE OF THE MOST RECENT DOSE OF PEMETREXED 1215 MG PRIOR TO SAE ONSET WAS ADMINISTERED ON 17/OCT
     Route: 042
     Dates: start: 20161017
  32. IBUPROFEN. [Concomitant]
     Active Substance: IBUPROFEN
     Indication: PAIN
     Route: 065
  33. IBUPROFEN. [Concomitant]
     Active Substance: IBUPROFEN
     Route: 065
     Dates: start: 20160922, end: 20161027
  34. CACO3 [Concomitant]
     Indication: METASTASES TO BONE
     Route: 065
     Dates: start: 20160922, end: 20170115
  35. ZALDIAR [Concomitant]
     Active Substance: ACETAMINOPHEN\TRAMADOL HYDROCHLORIDE
     Indication: PAIN
     Route: 065
     Dates: start: 20160922, end: 20161025
  36. DEXAMETHASONE. [Concomitant]
     Active Substance: DEXAMETHASONE
     Route: 065
     Dates: start: 20161204, end: 20161206
  37. DEXAMETHASONE. [Concomitant]
     Active Substance: DEXAMETHASONE
     Route: 065
     Dates: start: 20161107, end: 20161109
  38. OFLOXACINE [Concomitant]
     Active Substance: OFLOXACIN
     Indication: LEUKOPENIA
     Route: 065
     Dates: start: 20161114, end: 20161121
  39. ONDANSETRON [Concomitant]
     Active Substance: ONDANSETRON
     Indication: NAUSEA
     Route: 065
     Dates: start: 20161017, end: 20161017
  40. ONDANSETRON [Concomitant]
     Active Substance: ONDANSETRON
     Route: 065
     Dates: start: 20170102, end: 20170102
  41. CATAPRESSAN [Concomitant]
     Active Substance: CLONIDINE
     Indication: PROPHYLAXIS
     Route: 042
     Dates: start: 20170124, end: 20170124
  42. EMCONCOR [Concomitant]
     Active Substance: BISOPROLOL FUMARATE
     Indication: TACHYCARDIA
     Route: 065
     Dates: start: 20170208
  43. D-CURE [Concomitant]
     Active Substance: CHOLECALCIFEROL
     Indication: PROPHYLACTIC CHEMOTHERAPY
     Route: 065
     Dates: start: 20161018
  44. ENOXAPARIN [Concomitant]
     Active Substance: ENOXAPARIN
     Indication: THROMBOSIS PROPHYLAXIS
     Route: 065
     Dates: start: 20161130, end: 20161219
  45. FOLIC ACID. [Concomitant]
     Active Substance: FOLIC ACID
     Indication: PROPHYLACTIC CHEMOTHERAPY
     Route: 065
     Dates: start: 20160922
  46. DEXAMETHASONE. [Concomitant]
     Active Substance: DEXAMETHASONE
     Indication: PROPHYLACTIC CHEMOTHERAPY
     Route: 065
     Dates: start: 20161016, end: 20161018
  47. DEXAMETHASONE. [Concomitant]
     Active Substance: DEXAMETHASONE
     Route: 065
     Dates: start: 20170101, end: 20170103
  48. LITICAN [Concomitant]
     Active Substance: ALIZAPRIDE HYDROCHLORIDE
     Indication: NAUSEA
     Route: 065
     Dates: start: 20161018, end: 20161022
  49. OFLOXACINE [Concomitant]
     Active Substance: OFLOXACIN
     Route: 065
     Dates: start: 20170109, end: 20170114
  50. ITRACONAZOLE. [Concomitant]
     Active Substance: ITRACONAZOLE
     Indication: PNEUMONIA
     Route: 065
     Dates: start: 20170109, end: 20170114
  51. D-CURE [Concomitant]
     Active Substance: CHOLECALCIFEROL
     Route: 065
     Dates: start: 20160929
  52. LANOXIN [Concomitant]
     Active Substance: DIGOXIN
     Indication: ARRHYTHMIA
     Route: 065
     Dates: start: 2010
  53. EMEND [Concomitant]
     Active Substance: APREPITANT
     Indication: NAUSEA
     Route: 065
     Dates: start: 20161017, end: 20161017
  54. EMEND [Concomitant]
     Active Substance: APREPITANT
     Route: 065
     Dates: start: 20161018, end: 20161019
  55. EMEND [Concomitant]
     Active Substance: APREPITANT
     Route: 065
     Dates: start: 20161205, end: 20161205
  56. ONDANSETRON [Concomitant]
     Active Substance: ONDANSETRON
     Route: 065
     Dates: start: 20161205, end: 20161205
  57. LASIX [Concomitant]
     Active Substance: FUROSEMIDE
     Indication: DIURETIC THERAPY
     Route: 065
     Dates: start: 20170102, end: 20170102
  58. DOMINAL (BELGIUM) [Concomitant]
     Indication: INSOMNIA
     Route: 065
     Dates: start: 20170220
  59. KALIUM RETARD [Concomitant]
     Indication: HYPOKALAEMIA
     Route: 065
     Dates: start: 20161103, end: 20161201
  60. FILGRASTIM [Concomitant]
     Active Substance: FILGRASTIM
     Indication: NEUTROPENIA
     Route: 065
     Dates: start: 20161027, end: 20161029
  61. CISPLATIN. [Suspect]
     Active Substance: CISPLATIN
     Indication: NON-SMALL CELL LUNG CANCER STAGE IV
     Dosage: THE DATE OF THE MOST RECENT DOSE OF CISPLATIN 180 MG PRIOR TO SAE ONSET WAS ADMINISTERED ON 17/OCT/2
     Route: 042
     Dates: start: 20161017
  62. UNI DIAMICRON [Concomitant]
     Active Substance: GLICLAZIDE
     Indication: HYPERGLYCAEMIA
     Route: 065
     Dates: start: 2009
  63. EMEND [Concomitant]
     Active Substance: APREPITANT
     Route: 065
     Dates: start: 20170103, end: 20170104

REACTIONS (7)
  - Thrombocytopenia [Not Recovered/Not Resolved]
  - Pancytopenia [Recovered/Resolved]
  - Interstitial lung disease [Fatal]
  - Fatigue [Recovered/Resolved]
  - Anaemia [Recovered/Resolved]
  - Febrile neutropenia [Recovered/Resolved]
  - Pneumonia [Recovered/Resolved]

NARRATIVE: CASE EVENT DATE: 20161020
